FAERS Safety Report 8083019-1 (Version None)
Quarter: 2012Q1

REPORT INFORMATION
  Report Type: 
  Country: None (occurrence: None)
  Receive Date: 20120127
  Receipt Date: 20110309
  Transmission Date: 20120608
  Serious: No
  Sender: FDA-Public Use
  Company Number: US-ABBOTT-11P-163-0710607-00

PATIENT
  Sex: Female
  Weight: 90.8 kg

DRUGS (3)
  1. HUMIRA [Suspect]
     Indication: PSORIASIS
     Route: 058
     Dates: start: 20101001
  2. SIMVASTATIN [Concomitant]
     Indication: BLOOD CHOLESTEROL INCREASED
  3. SYNTHROID [Concomitant]
     Indication: HYPOTHYROIDISM

REACTIONS (3)
  - PSORIASIS [None]
  - DRUG DOSE OMISSION [None]
  - WRONG TECHNIQUE IN DRUG USAGE PROCESS [None]
